FAERS Safety Report 8919551 (Version 3)
Quarter: 2012Q4

REPORT INFORMATION
  Report Type: Report from Study
  Country: DE (occurrence: DE)
  Receive Date: 20121121
  Receipt Date: 20121206
  Transmission Date: 20130627
  Serious: Yes (Hospitalization)
  Sender: FDA-Public Use
  Company Number: DE-PFIZER INC-2012287715

PATIENT
  Age: 65 Year
  Sex: Female
  Weight: 94 kg

DRUGS (8)
  1. NO SUBJECT DRUG [Suspect]
  2. IDARUBICIN HYDROCHLORIDE [Concomitant]
     Indication: ACUTE MYELOID LEUKEMIA
     Dosage: 20 mg, UNK
     Dates: start: 20121018
  3. IDARUBICIN HYDROCHLORIDE [Concomitant]
     Dosage: 20 mg, UNK
     Dates: start: 20121022
  4. CYTARABINE [Concomitant]
     Indication: ACUTE MYELOID LEUKEMIA
     Dosage: 196.6 mg, UNK
     Dates: start: 20121018
  5. ATRA [Concomitant]
     Indication: ACUTE MYELOID LEUKEMIA
     Dosage: 90 mg, UNK
     Dates: start: 20121023, end: 20121025
  6. ATRA [Concomitant]
     Dosage: 30 mg, UNK
     Dates: start: 20121026, end: 20121107
  7. ETOPOSIDE [Concomitant]
     Indication: ACUTE MYELOID LEUKEMIA
     Dosage: 196.6 mg, UNK
     Dates: start: 20121018
  8. ETOPOSIDE [Concomitant]
     Dosage: 196.6 mg, UNK
     Dates: start: 20121020

REACTIONS (1)
  - Syncope [Recovered/Resolved]
